FAERS Safety Report 14401705 (Version 2)
Quarter: 2018Q1

REPORT INFORMATION
  Report Type: Spontaneous
  Country: US (occurrence: US)
  Receive Date: 20180117
  Receipt Date: 20180314
  Transmission Date: 20180509
  Serious: Yes (Hospitalization)
  Sender: FDA-Public Use
  Company Number: US-ASTRAZENECA-2018SE03540

PATIENT
  Age: 24602 Day
  Sex: Male
  Weight: 95.3 kg

DRUGS (2)
  1. SYMBICORT [Suspect]
     Active Substance: BUDESONIDE\FORMOTEROL FUMARATE DIHYDRATE
     Indication: EMPHYSEMA
     Route: 055
  2. SYMBICORT [Suspect]
     Active Substance: BUDESONIDE\FORMOTEROL FUMARATE DIHYDRATE
     Indication: EMPHYSEMA
     Dosage: 160/4.5, TWO PUFFS, TWO TIMES A DAY
     Route: 055
     Dates: start: 201711

REACTIONS (6)
  - Intentional device misuse [Unknown]
  - Wrong technique in product usage process [Not Recovered/Not Resolved]
  - Loss of consciousness [Recovered/Resolved]
  - Device malfunction [Not Recovered/Not Resolved]
  - Product taste abnormal [Unknown]
  - Insurance issue [Unknown]

NARRATIVE: CASE EVENT DATE: 20171129
